FAERS Safety Report 10050138 (Version 1)
Quarter: 2014Q2

REPORT INFORMATION
  Report Type: Spontaneous
  Country: IL (occurrence: IL)
  Receive Date: 20140401
  Receipt Date: 20140401
  Transmission Date: 20141212
  Serious: Yes (Other)
  Sender: FDA-Public Use
  Company Number: IL-ASTRAZENECA-2014SE20210

PATIENT
  Age: 16 Year
  Sex: Male
  Weight: 55 kg

DRUGS (2)
  1. PROPOFOL [Suspect]
     Indication: CONVULSION
     Dosage: 25-32 ML/H; TOTAL DOSE OF 1,879 MG OVER 67 HOURS
     Route: 042
  2. PROPOFOL [Suspect]
     Indication: SEDATIVE THERAPY
     Dosage: 25-32 ML/H; TOTAL DOSE OF 1,879 MG OVER 67 HOURS
     Route: 042

REACTIONS (2)
  - Propofol infusion syndrome [Recovered/Resolved]
  - Off label use [Unknown]
